FAERS Safety Report 7210400-2 (Version None)
Quarter: 2011Q1

REPORT INFORMATION
  Report Type: 
  Country: None (occurrence: None)
  Receive Date: 20110105
  Receipt Date: 20101224
  Transmission Date: 20110831
  Serious: Yes (Other)
  Sender: FDA-Public Use
  Company Number: PHHY2010CN80580

PATIENT
  Age: 68 Year
  Sex: Female

DRUGS (6)
  1. INSULIN [Concomitant]
     Indication: DIABETES MELLITUS
     Dosage: UNK
  2. CEFOPERAZONE SODIUM/SULBACTAM SODIUM [Concomitant]
     Indication: URINARY TRACT INFECTION
     Dosage: UNK
  3. ASPIRIN [Concomitant]
     Dosage: UNK
  4. LEVOFLOXACIN [Concomitant]
     Indication: URINARY TRACT INFECTION
     Dosage: UNK
     Route: 048
  5. AMLODIPINE BESYLATE [Concomitant]
     Indication: HYPERTENSION
     Dosage: UNK
  6. LESCOL [Suspect]
     Dosage: 40 MG, QD
     Route: 048
     Dates: start: 20100101, end: 20101018

REACTIONS (3)
  - CEREBRAL INFARCTION [None]
  - ALANINE AMINOTRANSFERASE INCREASED [None]
  - DEMYELINATING POLYNEUROPATHY [None]
